FAERS Safety Report 24602616 (Version 2)
Quarter: 2024Q4

REPORT INFORMATION
  Report Type: Report from Study
  Country: KR (occurrence: KR)
  Receive Date: 20241111
  Receipt Date: 20241122
  Transmission Date: 20250114
  Serious: Yes (Other)
  Sender: TEVA
  Company Number: KR-TAKEDA-2024TUS101876

PATIENT

DRUGS (3)
  1. METFORMIN [Suspect]
     Active Substance: METFORMIN HYDROCHLORIDE
     Indication: Type 2 diabetes mellitus
     Dosage: UNK
     Route: 065
  2. ALOGLIPTIN BENZOATE [Suspect]
     Active Substance: ALOGLIPTIN BENZOATE
     Indication: Type 2 diabetes mellitus
     Route: 065
  3. PIOGLITAZONE [Suspect]
     Active Substance: PIOGLITAZONE
     Indication: Type 2 diabetes mellitus
     Route: 065

REACTIONS (1)
  - Ureteric cancer [Unknown]
